FAERS Safety Report 7507913-2 (Version None)
Quarter: 2011Q2

REPORT INFORMATION
  Report Type: 
  Country: None (occurrence: None)
  Receive Date: 20110527
  Receipt Date: 20110519
  Transmission Date: 20111010
  Serious: Yes (Other)
  Sender: FDA-Public Use
  Company Number: US-BRISTOL-MYERS SQUIBB COMPANY-15759988

PATIENT
  Age: 71 Year
  Sex: Male

DRUGS (3)
  1. OMEPRAZOLE [Concomitant]
  2. ASPIRIN [Concomitant]
     Dosage: ONE IN THE AM
  3. COUMADIN [Suspect]
     Dates: start: 20050101

REACTIONS (1)
  - CEREBROVASCULAR ACCIDENT [None]
